FAERS Safety Report 9877262 (Version 4)
Quarter: 2014Q1

REPORT INFORMATION
  Report Type: Report from Study
  Country: US (occurrence: US)
  Receive Date: 20140206
  Receipt Date: 20140328
  Transmission Date: 20141002
  Serious: Yes (Hospitalization)
  Sender: FDA-Public Use
  Company Number: US-JNJFOC-20140104934

PATIENT
  Age: 16 Year
  Sex: Female
  Weight: 46.99 kg

DRUGS (8)
  1. REMICADE [Suspect]
     Indication: CROHN^S DISEASE
     Route: 042
     Dates: start: 20140109
  2. REMICADE [Suspect]
     Indication: CROHN^S DISEASE
     Route: 042
     Dates: start: 20130610
  3. 5-ASA [Concomitant]
     Route: 048
  4. PROBIOTICS [Concomitant]
     Route: 065
  5. CALCIUM AND MAGNESIUM [Concomitant]
     Route: 065
  6. MULTIVITAMINS [Concomitant]
     Route: 065
  7. VANCOMYCIN [Concomitant]
     Route: 065
  8. TRI-SPRINTEC [Concomitant]
     Indication: CONTRACEPTION
     Route: 065

REACTIONS (1)
  - Crohn^s disease [Recovered/Resolved]
